FAERS Safety Report 10497945 (Version 2)
Quarter: 2014Q4

REPORT INFORMATION
  Report Type: Spontaneous
  Country: US (occurrence: US)
  Receive Date: 20141006
  Receipt Date: 20141014
  Transmission Date: 20150528
  Serious: No
  Sender: FDA-Public Use
  Company Number: US-PFIZER INC-2014272755

PATIENT
  Age: 19 Year
  Sex: Male

DRUGS (1)
  1. ZOLOFT [Suspect]
     Active Substance: SERTRALINE HYDROCHLORIDE
     Dosage: UNK

REACTIONS (7)
  - Peripheral coldness [Recovered/Resolved]
  - Musculoskeletal stiffness [Recovered/Resolved]
  - Tremor [Not Recovered/Not Resolved]
  - Night sweats [Recovered/Resolved]
  - Energy increased [Recovered/Resolved]
  - Middle insomnia [Recovered/Resolved]
  - Drug intolerance [Recovered/Resolved]
